FAERS Safety Report 7119258-3 (Version None)
Quarter: 2010Q4

REPORT INFORMATION
  Report Type: 
  Country: None (occurrence: None)
  Receive Date: 20101123
  Receipt Date: 20101115
  Transmission Date: 20110411
  Serious: Yes (Other)
  Sender: FDA-Public Use
  Company Number: US-SANOFI-AVENTIS-2010SA070025

PATIENT
  Age: 68 Year
  Sex: Female

DRUGS (7)
  1. LANTUS [Suspect]
     Indication: TYPE 2 DIABETES MELLITUS
     Dosage: DOSE:25 UNIT(S)
     Route: 058
  2. LANTUS [Suspect]
     Dosage: DOSE:38 UNIT(S)
     Route: 058
  3. SOLOSTAR [Suspect]
     Indication: TYPE 2 DIABETES MELLITUS
  4. ALL OTHER THERAPEUTIC PRODUCTS [Concomitant]
  5. EYE DROPS [Concomitant]
  6. COUMADIN [Concomitant]
  7. NOVOLOG [Concomitant]
     Dosage: WITH MEALS

REACTIONS (8)
  - BLOOD GLUCOSE INCREASED [None]
  - CYST [None]
  - DEVICE BREAKAGE [None]
  - EYE DISORDER [None]
  - GLAUCOMA [None]
  - LIQUID PRODUCT PHYSICAL ISSUE [None]
  - RETINAL INJURY [None]
  - VISUAL ACUITY REDUCED [None]
